FAERS Safety Report 7737892-4 (Version None)
Quarter: 2011Q3

REPORT INFORMATION
  Report Type: 
  Country: None (occurrence: None)
  Receive Date: 20110908
  Receipt Date: 20110902
  Transmission Date: 20111222
  Serious: Yes (Other)
  Sender: FDA-Public Use
  Company Number: PHEH2009US16946

PATIENT
  Sex: Female

DRUGS (3)
  1. ZOMETA [Suspect]
  2. AREDIA [Suspect]
  3. FEMARA [Concomitant]

REACTIONS (11)
  - VENOUS THROMBOSIS [None]
  - GENERAL PHYSICAL HEALTH DETERIORATION [None]
  - ANHEDONIA [None]
  - AORTIC VALVE SCLEROSIS [None]
  - OSTEONECROSIS OF JAW [None]
  - PAIN [None]
  - ANXIETY [None]
  - INTERVERTEBRAL DISC DEGENERATION [None]
  - THYROID NEOPLASM [None]
  - HEART VALVE INCOMPETENCE [None]
  - SPINAL OSTEOARTHRITIS [None]
